FAERS Safety Report 13790512 (Version 1)
Quarter: 2017Q3

REPORT INFORMATION
  Report Type: Spontaneous
  Country: FR (occurrence: FR)
  Receive Date: 20170725
  Receipt Date: 20170725
  Transmission Date: 20171127
  Serious: Yes (Hospitalization, Other)
  Sender: FDA-Public Use
  Company Number: FR-GLAXOSMITHKLINE-FR2017GSK112220

PATIENT
  Age: 57 Year
  Sex: Male

DRUGS (23)
  1. XANAX [Suspect]
     Active Substance: ALPRAZOLAM
     Indication: ANXIETY
     Dosage: 0.25 MG, QD, SINGLE INTAKE
     Route: 048
  2. PIPERACILLIN AND TAZOBACTAM [Suspect]
     Active Substance: PIPERACILLIN SODIUM\TAZOBACTAM SODIUM
     Indication: ANTIBIOTIC THERAPY
     Dosage: 4 G, QD
     Route: 042
     Dates: start: 20170612, end: 20170614
  3. LASILIX [Suspect]
     Active Substance: FUROSEMIDE
     Indication: ACUTE PULMONARY OEDEMA
     Dosage: 40 MG TO 120 MG DAILY
     Route: 042
     Dates: start: 20170616, end: 20170620
  4. TENORMIN [Suspect]
     Active Substance: ATENOLOL
     Indication: PRODUCT USED FOR UNKNOWN INDICATION
     Dosage: 0.25 MG, QD
     Route: 048
     Dates: start: 20170620
  5. ARACYTINE [Suspect]
     Active Substance: CYTARABINE
     Indication: ACUTE MYELOID LEUKAEMIA
     Dosage: 340 MG, QD
     Route: 042
     Dates: start: 20170608, end: 20170614
  6. CYCLO 3 FORT [Suspect]
     Active Substance: ASCORBIC ACID\HESPERIDIN METHYLCHALCONE\RUSCUS ACULEATUS ROOT
     Indication: HAEMORRHOIDS
     Dosage: 3 DF, QD
     Route: 048
     Dates: start: 20170608, end: 20170618
  7. ZOVIRAX [Suspect]
     Active Substance: ACYCLOVIR
     Indication: ANTIVIRAL TREATMENT
     Dosage: 250 TO 500 MG DAILY
     Route: 042
     Dates: start: 20170613, end: 20170621
  8. FORTUM [Suspect]
     Active Substance: CEFTAZIDIME
     Indication: ANTIBIOTIC THERAPY
     Dosage: 6 G, QD
     Route: 042
     Dates: start: 20170614, end: 20170619
  9. VANCOMYCINE [Suspect]
     Active Substance: VANCOMYCIN
     Indication: ANTIBIOTIC THERAPY
     Dosage: 2.5 G TO 4 G DAILY
     Route: 042
     Dates: start: 20170610, end: 20170619
  10. TIENAM [Suspect]
     Active Substance: CILASTATIN SODIUM\IMIPENEM
     Indication: ANTIBIOTIC THERAPY
     Dosage: 1000 MG, QD
     Route: 042
     Dates: start: 20170619, end: 20170620
  11. PARACETAMOL B. BRAUN [Suspect]
     Active Substance: ACETAMINOPHEN
     Indication: ANALGESIC INTERVENTION SUPPORTIVE THERAPY
     Dosage: 2 G, QD
     Route: 042
     Dates: start: 20170617, end: 20170618
  12. ACETAMINOPHEN AND CODEINE [Concomitant]
     Active Substance: ACETAMINOPHEN\CODEINE PHOSPHATE
  13. TOPALGIC (TRAMADOL) [Suspect]
     Active Substance: TRAMADOL
     Indication: ANALGESIC INTERVENTION SUPPORTIVE THERAPY
     Dosage: 200 MG TO 400 MG DAILY
     Route: 042
     Dates: start: 20170611, end: 20170620
  14. SEDORRHOIDE /00967801/ [Suspect]
     Active Substance: BENZOCAINE\BUTAMBEN\DODECLONIUM\ENOXOLONE\ESCULIN
     Indication: HAEMORRHOIDS
     Dosage: UNK UNK, BID
     Route: 054
     Dates: start: 20170613, end: 20170619
  15. PRIMPERAN [Suspect]
     Active Substance: METOCLOPRAMIDE HYDROCHLORIDE
     Indication: NAUSEA
     Dosage: 10 MG, QD
     Route: 048
     Dates: start: 20170613, end: 20170621
  16. TRIFLUCAN [Suspect]
     Active Substance: FLUCONAZOLE
     Indication: CHEMOTHERAPY
     Dosage: 1 DF, QD
     Route: 042
     Dates: start: 20170614, end: 20170617
  17. ALDACTONE [Suspect]
     Active Substance: SPIRONOLACTONE
     Indication: OEDEMA
     Dosage: 75 MG, QD
     Route: 048
     Dates: start: 20170619
  18. IDARUBICIN [Suspect]
     Active Substance: IDARUBICIN
     Indication: ACUTE MYELOID LEUKAEMIA
     Dosage: 15 30 MG DAILY (15 3 MG 1D) AS REPORTED
     Route: 042
     Dates: start: 20170608, end: 20170612
  19. OROZAMUDOL [Suspect]
     Active Substance: TRAMADOL
     Indication: ANALGESIC INTERVENTION SUPPORTIVE THERAPY
     Dosage: 100 MG, QD
     Route: 048
     Dates: start: 20170611, end: 20170620
  20. VITAMIN K [Suspect]
     Active Substance: PHYTONADIONE
     Indication: ELECTROLYTE IMBALANCE
     Dosage: UNK
     Route: 048
     Dates: start: 20170607, end: 20170619
  21. ZYVOXID [Suspect]
     Active Substance: LINEZOLID
     Indication: ANTIBIOTIC THERAPY
     Dosage: 1200 MG, QD
     Route: 042
     Dates: start: 20170619, end: 20170620
  22. CANCIDAS [Suspect]
     Active Substance: CASPOFUNGIN ACETATE
     Indication: FUNGAL INFECTION
     Dosage: 50 MG, QD
     Route: 042
     Dates: start: 20170618, end: 20170620
  23. VIALEBEX [Suspect]
     Active Substance: ALBUMIN HUMAN
     Indication: OEDEMA
     Dosage: 1 DF, QD
     Route: 042
     Dates: start: 20170619

REACTIONS (5)
  - Extrapyramidal disorder [Recovering/Resolving]
  - Hyperbilirubinaemia [Not Recovered/Not Resolved]
  - Toxic skin eruption [None]
  - Atrial fibrillation [Recovering/Resolving]
  - Hypotension [None]

NARRATIVE: CASE EVENT DATE: 20170619
